FAERS Safety Report 6911769-6 (Version None)
Quarter: 2010Q3

REPORT INFORMATION
  Report Type: 
  Country: None (occurrence: None)
  Receive Date: 20100806
  Receipt Date: 20100805
  Transmission Date: 20110219
  Serious: Yes (Disabling, Other)
  Sender: FDA-Public Use
  Company Number: JP-ALLERGAN-1003260US

PATIENT
  Age: 57 Year
  Sex: Male

DRUGS (9)
  1. LUMIGAN [Suspect]
     Indication: GLAUCOMA
     Dosage: 1 GTT, QD
     Route: 047
     Dates: start: 20091109, end: 20100103
  2. CARTEOLOL HYDROCHLORIDE [Suspect]
     Indication: GLAUCOMA
     Dosage: 1 GTT, BID
     Route: 047
     Dates: start: 20090831, end: 20100103
  3. BRINZOLAMIDE [Concomitant]
     Dosage: UNK
     Dates: start: 20090406
  4. ACETAZOLAMIDE [Concomitant]
     Dosage: UNK
     Dates: start: 20090831
  5. POTASSIUM GLUCONATE TAB [Concomitant]
     Dosage: UNK
     Dates: start: 20090831
  6. PREDNISOLONE [Concomitant]
     Indication: ANTIINFLAMMATORY THERAPY
     Dosage: UNK
     Dates: start: 20080208
  7. FAMOTIDINE [Concomitant]
     Dosage: UNK
     Dates: start: 20080208
  8. FLUMETHOLON [Concomitant]
     Indication: ANTIINFLAMMATORY THERAPY
     Dosage: UNK
     Dates: start: 20091005
  9. LEVOFLOXACIN [Concomitant]
     Dosage: UNK
     Dates: start: 20080115

REACTIONS (1)
  - INTRAOCULAR PRESSURE INCREASED [None]
